FAERS Safety Report 5287873-8 (Version None)
Quarter: 2007Q1

REPORT INFORMATION
  Report Type: 
  Country: None (occurrence: None)
  Receive Date: 20070330
  Receipt Date: 20060921
  Transmission Date: 20070707
  Serious: Yes (Other)
  Sender: FDA-Public Use
  Company Number: 2787

PATIENT
  Age: 25 Year
  Sex: Female

DRUGS (1)
  1. AMNESTEEM (ISOTRETINOIN), XX MG CAPSULES, MYLAN [Suspect]
     Indication: ACNE
     Dosage: 50 MG, BID, PO
     Route: 048
     Dates: start: 20051001, end: 20060201

REACTIONS (2)
  - DRUG EXPOSURE DURING PREGNANCY [None]
  - PREGNANCY [None]
